FAERS Safety Report 7106235-1 (Version None)
Quarter: 2010Q4

REPORT INFORMATION
  Report Type: 
  Country: None (occurrence: None)
  Receive Date: 20101116
  Receipt Date: 20101103
  Transmission Date: 20110411
  Serious: Yes (Other)
  Sender: FDA-Public Use
  Company Number: US-ELI_LILLY_AND_COMPANY-US200910007757

PATIENT
  Sex: Female
  Weight: 112.93 kg

DRUGS (9)
  1. ZYPREXA [Suspect]
     Dosage: 1 D/F, UNK
     Dates: start: 20030402, end: 20071031
  2. ZYPREXA [Suspect]
     Dosage: 10 MG, UNK
     Dates: start: 20030402, end: 20071031
  3. ZYPREXA [Suspect]
     Dosage: 20 MG, EACH EVENING
     Dates: start: 20070829
  4. ARIPIPRAZOLE [Concomitant]
     Dates: start: 20070215, end: 20070314
  5. QUETIAPINE [Concomitant]
     Dates: start: 20061018, end: 20080505
  6. HALOPERIDOL [Concomitant]
     Dates: start: 20070221, end: 20070321
  7. SERTRALINE HYDROCHLORIDE [Concomitant]
     Dates: start: 20070927, end: 20081022
  8. VENLAFAXINE HYDROCHLORIDE [Concomitant]
     Dates: start: 20040304, end: 20040404
  9. CONTRACEPTIVES [Concomitant]
     Dosage: UNK, UNKNOWN
     Route: 048

REACTIONS (4)
  - BLOOD PRESSURE INCREASED [None]
  - CARDIAC ARREST [None]
  - DIABETES MELLITUS [None]
  - METRORRHAGIA [None]
